FAERS Safety Report 7714518-7 (Version None)
Quarter: 2011Q3

REPORT INFORMATION
  Report Type: 
  Country: None (occurrence: None)
  Receive Date: 20110829
  Receipt Date: 20110822
  Transmission Date: 20111222
  Serious: No
  Sender: FDA-Public Use
  Company Number: US-TEVA-297474USA

PATIENT
  Sex: Female
  Weight: 72.64 kg

DRUGS (1)
  1. PROAIR HFA [Suspect]
     Dosage: 2 INHALATIONS 3-4 TIMES PER DAY
     Route: 055
     Dates: start: 20110807

REACTIONS (1)
  - DRUG INEFFECTIVE [None]
